FAERS Safety Report 13941033 (Version 3)
Quarter: 2018Q3

REPORT INFORMATION
  Report Type: Spontaneous
  Country: US (occurrence: US)
  Receive Date: 20170906
  Receipt Date: 20180716
  Transmission Date: 20181010
  Serious: Yes (Hospitalization, Other)
  Sender: FDA-Public Use
  Company Number: US-DSJP-DSU-2017-134942

PATIENT

DRUGS (1)
  1. BENICAR HCT [Suspect]
     Active Substance: HYDROCHLOROTHIAZIDE\OLMESARTAN MEDOXOMIL
     Indication: PRODUCT USED FOR UNKNOWN INDICATION
     Dosage: 40?25 MG, QD
     Route: 048
     Dates: start: 20110203, end: 20130116

REACTIONS (5)
  - Gastrooesophageal reflux disease [Unknown]
  - Gastrointestinal haemorrhage [Recovered/Resolved]
  - Diverticulitis [Unknown]
  - Infectious colitis [Unknown]
  - Colitis microscopic [Recovering/Resolving]

NARRATIVE: CASE EVENT DATE: 20110627
